FAERS Safety Report 7673490-9 (Version None)
Quarter: 2011Q3

REPORT INFORMATION
  Report Type: 
  Country: None (occurrence: None)
  Receive Date: 20110810
  Receipt Date: 20110803
  Transmission Date: 20111222
  Serious: Yes (Death)
  Sender: FDA-Public Use
  Company Number: JP-JNJFOC-20110411350

PATIENT
  Age: 37 Year
  Sex: Male

DRUGS (15)
  1. HALOPERIDOL [Suspect]
     Indication: SCHIZOPHRENIA
     Route: 048
     Dates: start: 20101026, end: 20110422
  2. INVEGA [Suspect]
     Route: 048
     Dates: start: 20110405, end: 20110418
  3. ASVERIN [Suspect]
     Indication: COUGH
     Route: 048
     Dates: end: 20110422
  4. INVEGA [Suspect]
     Route: 048
     Dates: start: 20110329, end: 20110404
  5. DESYREL [Suspect]
     Indication: SCHIZOPHRENIA
     Route: 048
     Dates: end: 20110422
  6. INVEGA [Suspect]
     Route: 048
     Dates: start: 20110329, end: 20110404
  7. ZYPREXA [Suspect]
     Route: 048
     Dates: start: 20110419, end: 20110422
  8. INVEGA [Suspect]
     Route: 048
     Dates: start: 20110405, end: 20110418
  9. ZYPREXA [Suspect]
     Indication: SCHIZOPHRENIA
     Route: 048
     Dates: end: 20110404
  10. ZYPREXA [Suspect]
     Route: 048
     Dates: start: 20110405, end: 20110418
  11. DEPAKENE [Suspect]
     Indication: SCHIZOPHRENIA
     Route: 048
     Dates: start: 20110222, end: 20110422
  12. AKINETON [Suspect]
     Indication: PARKINSON'S DISEASE
     Route: 048
     Dates: start: 20090106, end: 20110422
  13. INVEGA [Suspect]
     Indication: INSOMNIA
     Route: 048
     Dates: start: 20110419, end: 20110422
  14. INVEGA [Suspect]
     Indication: SCHIZOPHRENIA
     Route: 048
     Dates: start: 20110419, end: 20110422
  15. CLONAZEPAM [Suspect]
     Indication: SCHIZOPHRENIA
     Route: 048
     Dates: start: 20100608, end: 20110422

REACTIONS (3)
  - SALIVARY HYPERSECRETION [None]
  - MOOD ALTERED [None]
  - CARDIAC FAILURE [None]
